FAERS Safety Report 5329763-8 (Version None)
Quarter: 2007Q2

REPORT INFORMATION
  Report Type: 
  Country: None (occurrence: None)
  Receive Date: 20070521
  Receipt Date: 20070510
  Transmission Date: 20071010
  Serious: Yes (Hospitalization, Other)
  Sender: FDA-Public Use
  Company Number: US-ROCHE-497033

PATIENT
  Age: 80 Year
  Sex: Female

DRUGS (2)
  1. PEGASYS [Suspect]
     Indication: HEPATITIS C
     Dosage: PEGASYS DOSE FLUCTUATED BETWEEN 45 MCG TO 90 MCG.
     Route: 058
     Dates: end: 20070101
  2. PEG-INTRON [Suspect]
     Indication: HEPATITIS C
     Route: 065
     Dates: start: 20000101

REACTIONS (3)
  - ALANINE AMINOTRANSFERASE ABNORMAL [None]
  - HEPATIC NEOPLASM MALIGNANT [None]
  - PYREXIA [None]
